FAERS Safety Report 9260689 (Version 4)
Quarter: 2013Q3

REPORT INFORMATION
  Report Type: Report from Study
  Country: JP (occurrence: JP)
  Receive Date: 20130429
  Receipt Date: 20130912
  Transmission Date: 20140515
  Serious: Yes (Hospitalization)
  Sender: FDA-Public Use
  Company Number: JP-PFIZER INC-2013127141

PATIENT
  Age: 70 Year
  Sex: Male
  Weight: 54 kg

DRUGS (12)
  1. CRIZOTINIB [Suspect]
     Indication: NON-SMALL CELL LUNG CANCER
     Dosage: 250 MG, 2X/DAY
     Route: 048
     Dates: start: 20130130, end: 20130206
  2. CRIZOTINIB [Suspect]
     Dosage: 250 MG, 1X/DAY
     Route: 048
     Dates: start: 20130319, end: 20130319
  3. CRIZOTINIB [Suspect]
     Dosage: 250 MG, 1X/DAY
     Route: 048
     Dates: start: 20130321, end: 20130321
  4. CRIZOTINIB [Suspect]
     Dosage: 250 MG, 1X/DAY
     Route: 048
     Dates: start: 20130323, end: 20130323
  5. CRIZOTINIB [Suspect]
     Dosage: 250 MG, 1X/DAY
     Route: 048
     Dates: start: 20130325, end: 20130325
  6. CRIZOTINIB [Suspect]
     Dosage: 250 MG, 1X/DAY
     Route: 048
     Dates: start: 20130327, end: 20130327
  7. CRIZOTINIB [Suspect]
     Dosage: 250 MG, 1X/DAY
     Route: 048
     Dates: start: 20130329, end: 20130329
  8. CRIZOTINIB [Suspect]
     Dosage: 250 MG, 1X/DAY
     Route: 048
     Dates: start: 20130331, end: 20130331
  9. CRIZOTINIB [Suspect]
     Dosage: 250 MG, 1X/DAY
     Route: 048
     Dates: start: 20130402, end: 20130402
  10. MAG-LAX [Concomitant]
     Dosage: 330 MG, 3X/DAY
     Route: 048
     Dates: start: 20130203, end: 20130303
  11. PURSENNID [Concomitant]
     Dosage: 24 MG, 1X/DAY
     Route: 048
     Dates: start: 20130203, end: 20130303
  12. SULBACILLIN [Concomitant]
     Dosage: 3 G, 2X/DAY
     Route: 042
     Dates: start: 20130204, end: 20130205

REACTIONS (3)
  - Hepatic function abnormal [Recovered/Resolved]
  - Cholecystitis [Recovered/Resolved]
  - Hepatic function abnormal [Recovered/Resolved]
